FAERS Safety Report 5113417-7 (Version None)
Quarter: 2006Q3

REPORT INFORMATION
  Report Type: 
  Country: None (occurrence: None)
  Receive Date: 20060920
  Receipt Date: 20060827
  Transmission Date: 20061208
  Serious: Yes (Other)
  Sender: FDA-Public Use
  Company Number: 2006SP000173

PATIENT
  Age: 52 Year
  Sex: Male

DRUGS (2)
  1. PEG-INTRON [Suspect]
     Dosage: SC
     Route: 058
  2. RIBAVIRIN [Suspect]

REACTIONS (3)
  - CATARACT SUBCAPSULAR [None]
  - RETINAL EXUDATES [None]
  - RETINAL HAEMORRHAGE [None]
